FAERS Safety Report 10364316 (Version 2)
Quarter: 2015Q3

REPORT INFORMATION
  Report Type: Spontaneous
  Country: GB (occurrence: GB)
  Receive Date: 20140806
  Receipt Date: 20150707
  Transmission Date: 20151125
  Serious: Yes (Hospitalization, Other)
  Sender: FDA-Public Use
  Company Number: GB-ROCHE-1443929

PATIENT
  Age: 48 Year
  Sex: Female
  Weight: 51 kg

DRUGS (2)
  1. MABTHERA [Suspect]
     Active Substance: RITUXIMAB
     Indication: RHEUMATOID ARTHRITIS
     Dosage: GIVEN AS A PAIR 2 WEEKS APART EVERY 6 MONTHS
     Route: 042
     Dates: start: 200911, end: 201309
  2. PREDNISOLONE. [Concomitant]
     Active Substance: PREDNISOLONE
     Indication: RHEUMATOID ARTHRITIS
     Route: 048

REACTIONS (7)
  - Leukodystrophy [Not Recovered/Not Resolved]
  - Cognitive disorder [Unknown]
  - Leukodystrophy [Recovering/Resolving]
  - Cough [Unknown]
  - Dyspnoea [Unknown]
  - Progressive multifocal leukoencephalopathy [Unknown]
  - Vision blurred [Unknown]

NARRATIVE: CASE EVENT DATE: 2013
